FAERS Safety Report 10256543 (Version 1)
Quarter: 2014Q2

REPORT INFORMATION
  Report Type: Spontaneous
  Country: AR (occurrence: AR)
  Receive Date: 20140624
  Receipt Date: 20140624
  Transmission Date: 20141212
  Serious: Yes (Other)
  Sender: FDA-Public Use
  Company Number: PHHY2014AR076356

PATIENT
  Age: 39 Year
  Sex: Female
  Weight: 70 kg

DRUGS (2)
  1. GILENYA [Suspect]
     Indication: MULTIPLE SCLEROSIS
     Dosage: 0.5 MG, QD
     Route: 048
     Dates: start: 20131126, end: 20140618
  2. PREGABALIN [Concomitant]

REACTIONS (6)
  - Cardiac autonomic neuropathy [Unknown]
  - Presyncope [Unknown]
  - Syncope [Unknown]
  - Cardiovascular disorder [Unknown]
  - Blood pressure decreased [Unknown]
  - Heart rate decreased [Unknown]
